FAERS Safety Report 10609079 (Version 2)
Quarter: 2014Q4

REPORT INFORMATION
  Report Type: Spontaneous
  Country: PL (occurrence: PL)
  Receive Date: 20141126
  Receipt Date: 20141217
  Transmission Date: 20150529
  Serious: No
  Sender: FDA-Public Use
  Company Number: PL-ROCHE-1495802

PATIENT
  Age: 11 Year
  Sex: Male
  Weight: 51.3 kg

DRUGS (5)
  1. CELLCEPT [Suspect]
     Active Substance: MYCOPHENOLATE MOFETIL\MYCOPHENOLATE MOFETIL HYDROCHLORIDE
     Indication: NEPHROTIC SYNDROME
     Route: 048
     Dates: start: 20120520, end: 20141115
  2. ENARENAL [Suspect]
     Active Substance: ENALAPRIL
     Indication: NEPHROTIC SYNDROME
     Route: 048
     Dates: start: 201307
  3. MABTHERA [Suspect]
     Active Substance: RITUXIMAB
     Indication: NEPHROTIC SYNDROME
     Route: 065
     Dates: start: 201408
  4. CYCLAID [Concomitant]
     Active Substance: CYCLOSPORINE
     Indication: NEPHROTIC SYNDROME
     Route: 048
     Dates: start: 2004, end: 20141113
  5. ENCORTON [Concomitant]
     Active Substance: PREDNISONE
     Indication: NEPHROTIC SYNDROME
     Route: 048
     Dates: start: 2004

REACTIONS (1)
  - Neutrophil Pelger-Huet anomaly present [Recovered/Resolved]

NARRATIVE: CASE EVENT DATE: 20141113
